FAERS Safety Report 4464928-9 (Version None)
Quarter: 2004Q4

REPORT INFORMATION
  Report Type: 
  Country: None (occurrence: None)
  Receive Date: 20041004
  Receipt Date: 20040305
  Transmission Date: 20050328
  Serious: No
  Sender: FDA-Public Use
  Company Number: 364906

PATIENT
  Age: 76 Year
  Sex: Male

DRUGS (6)
  1. COREG [Suspect]
     Indication: HEART RATE DECREASED
     Dosage: 6.25MG TWICE PER DAY
     Route: 048
     Dates: start: 20040115
  2. FUROSEMIDE [Concomitant]
  3. ZOCOR [Concomitant]
  4. SYNTHROID [Concomitant]
  5. COUMADIN [Concomitant]
  6. PREDNISONE [Concomitant]

REACTIONS (6)
  - DIZZINESS [None]
  - DYSPNOEA [None]
  - FALL [None]
  - HEART RATE INCREASED [None]
  - LOSS OF CONSCIOUSNESS [None]
  - OXYGEN SATURATION DECREASED [None]
